FAERS Safety Report 9791090 (Version 1)
Quarter: 2013Q4

REPORT INFORMATION
  Report Type: Spontaneous
  Country: US (occurrence: US)
  Receive Date: 20131231
  Receipt Date: 20131231
  Transmission Date: 20140711
  Serious: No
  Sender: FDA-Public Use
  Company Number: US-BIOGENIDEC-2013BI123182

PATIENT
  Age: 64 Year
  Sex: Female

DRUGS (7)
  1. TECFIDERA [Suspect]
     Indication: MULTIPLE SCLEROSIS
     Route: 048
     Dates: start: 20131206
  2. B12-ACTIVE [Concomitant]
  3. FLEXERIL [Concomitant]
  4. OMEPRAZOLE [Concomitant]
  5. PROZAC [Concomitant]
  6. TRAMADOL HCL [Concomitant]
  7. VITAMIN B-12 [Concomitant]

REACTIONS (2)
  - Fall [Recovered/Resolved]
  - Muscular weakness [Unknown]
